FAERS Safety Report 12168261 (Version 1)
Quarter: 2016Q1

REPORT INFORMATION
  Report Type: Spontaneous
  Country: US (occurrence: US)
  Receive Date: 20160310
  Receipt Date: 20160310
  Transmission Date: 20160526
  Serious: No
  Sender: FDA-Public Use
  Company Number: US-LEO PHARMA-240588

PATIENT
  Age: 77 Year
  Sex: Male

DRUGS (1)
  1. PICATO [Suspect]
     Active Substance: INGENOL MEBUTATE
     Indication: PRECANCEROUS SKIN LESION
     Route: 061

REACTIONS (6)
  - Application site burn [Not Recovered/Not Resolved]
  - Application site pain [Unknown]
  - Application site pain [Not Recovered/Not Resolved]
  - Application site erythema [Not Recovered/Not Resolved]
  - Application site pain [Unknown]
  - Application site pruritus [Recovered/Resolved]

NARRATIVE: CASE EVENT DATE: 20160303
